FAERS Safety Report 5929056-1 (Version None)
Quarter: 2008Q4

REPORT INFORMATION
  Report Type: 
  Country: None (occurrence: None)
  Receive Date: 20081024
  Receipt Date: 20081015
  Transmission Date: 20090506
  Serious: Yes (Other)
  Sender: FDA-Public Use
  Company Number: ES-CELGENEUS-144-21880-08041741

PATIENT
  Sex: Male

DRUGS (2)
  1. REVLIMID [Suspect]
     Indication: MULTIPLE MYELOMA
     Route: 048
     Dates: start: 20080422, end: 20080424
  2. REVLIMID [Suspect]
     Route: 048
     Dates: start: 20080505, end: 20080507

REACTIONS (3)
  - DERMATITIS EXFOLIATIVE [None]
  - ICHTHYOSIS [None]
  - PYREXIA [None]
